FAERS Safety Report 13700950 (Version 1)
Quarter: 2017Q2

REPORT INFORMATION
  Report Type: Spontaneous
  Country: NO (occurrence: NO)
  Receive Date: 20170629
  Receipt Date: 20170629
  Transmission Date: 20170830
  Serious: Yes (Hospitalization, Other)
  Sender: FDA-Public Use
  Company Number: NO-ELI_LILLY_AND_COMPANY-NO201706010408

PATIENT
  Sex: Male

DRUGS (4)
  1. ZYPREXA [Suspect]
     Active Substance: OLANZAPINE
     Indication: SCHIZOAFFECTIVE DISORDER
     Dosage: 15 MG, DAILY
     Route: 065
     Dates: start: 20030801
  2. ZYPREXA [Suspect]
     Active Substance: OLANZAPINE
     Dosage: 10 MG, DAILY
     Route: 065
     Dates: end: 20150501
  3. CETIRIZIN [Concomitant]
     Active Substance: CETIRIZINE HYDROCHLORIDE
     Dosage: UNK, UNKNOWN
     Route: 065
  4. ZYPREXA [Suspect]
     Active Substance: OLANZAPINE
     Dosage: 12.5 MG, DAILY
     Route: 065

REACTIONS (8)
  - Psychotic disorder [Unknown]
  - Suicidal ideation [Unknown]
  - Fatigue [Unknown]
  - Suicide attempt [Unknown]
  - Hypothyroidism [Unknown]
  - Insomnia [Unknown]
  - Schizoaffective disorder [Unknown]
  - Weight increased [Unknown]
